FAERS Safety Report 10078822 (Version 2)
Quarter: 2014Q2

REPORT INFORMATION
  Report Type: Spontaneous
  Country: US (occurrence: US)
  Receive Date: 20140415
  Receipt Date: 20140616
  Transmission Date: 20141212
  Serious: No
  Sender: FDA-Public Use
  Company Number: US-009507513-1404USA006152

PATIENT
  Sex: Female

DRUGS (14)
  1. OXYTROL FOR WOMEN [Suspect]
     Indication: URINARY INCONTINENCE
     Dosage: 1 DF, Q4D
     Route: 062
     Dates: start: 201402, end: 201403
  2. ZOCOR [Concomitant]
     Indication: PRODUCT USED FOR UNKNOWN INDICATION
     Dosage: UNK, UNKNOWN
  3. COLACE [Concomitant]
     Indication: PRODUCT USED FOR UNKNOWN INDICATION
     Dosage: UNK, UNKNOWN
  4. PAROXETINE [Concomitant]
     Indication: PRODUCT USED FOR UNKNOWN INDICATION
     Dosage: UNK, UNKNOWN
  5. CYANOCOBALAMIN [Concomitant]
     Indication: PRODUCT USED FOR UNKNOWN INDICATION
     Dosage: 1000 MG, UNKNOWN
  6. LYSINE [Concomitant]
     Indication: PRODUCT USED FOR UNKNOWN INDICATION
     Dosage: 5 MG, UNKNOWN
  7. ASCORBIC ACID [Concomitant]
     Indication: PRODUCT USED FOR UNKNOWN INDICATION
  8. METFORMIN [Concomitant]
     Indication: TYPE 2 DIABETES MELLITUS
     Dosage: 500 MG, QD
  9. ATENOLOL [Concomitant]
     Indication: PRODUCT USED FOR UNKNOWN INDICATION
     Dosage: UNK, UNKNOWN
  10. OCUVITE [Concomitant]
     Indication: EYE DISORDER
     Dosage: UNK, UNKNOWN
  11. CHOLECALCIFEROL [Concomitant]
     Indication: OSTEOPOROSIS
     Dosage: UNK, UNKNOWN
  12. MELATONIN [Concomitant]
     Indication: SLEEP DISORDER
     Dosage: 5 MG, UNKNOWN
  13. CELEBREX [Concomitant]
     Indication: BONE PAIN
     Dosage: 200 MG, UNKNOWN
  14. CETIRIZINE HYDROCHLORIDE [Concomitant]
     Indication: HYPERSENSITIVITY
     Dosage: UNK, UNKNOWN

REACTIONS (4)
  - Drug administered at inappropriate site [Unknown]
  - Off label use [Unknown]
  - Drug ineffective [Unknown]
  - Product adhesion issue [Unknown]
